FAERS Safety Report 8480886-4 (Version None)
Quarter: 2012Q3

REPORT INFORMATION
  Report Type: 
  Country: None (occurrence: None)
  Receive Date: 20120702
  Receipt Date: 20120618
  Transmission Date: 20120928
  Serious: Yes (Death, Hospitalization, Other)
  Sender: FDA-Public Use
  Company Number: NL-RANBAXY-2011R1-43258

PATIENT
  Age: 53 Year
  Sex: Male

DRUGS (2)
  1. AMLODIPINE [Suspect]
     Indication: HYPERTENSION
     Dosage: 10 MG/DAY
     Route: 065
  2. CIPROFLOXACIN HYDROCHLORIDE [Suspect]
     Indication: PROSTATITIS
     Dosage: 500 MG, BID
     Route: 065

REACTIONS (3)
  - SUICIDE ATTEMPT [None]
  - DEPRESSION [None]
  - SUICIDAL IDEATION [None]
